FAERS Safety Report 9175512 (Version 3)
Quarter: 2013Q2

REPORT INFORMATION
  Report Type: Report from Study
  Country: US (occurrence: US)
  Receive Date: 20130320
  Receipt Date: 20130530
  Transmission Date: 20140414
  Serious: Yes (Hospitalization, Other)
  Sender: FDA-Public Use
  Company Number: US-US-EMD SERONO, INC.-7185479

PATIENT
  Age: 56 Year
  Sex: Female

DRUGS (4)
  1. REBIF [Suspect]
     Indication: MULTIPLE SCLEROSIS
     Route: 058
     Dates: start: 20121119
  2. REBIF [Suspect]
     Route: 058
     Dates: start: 201212
  3. REBIF [Suspect]
     Route: 058
     Dates: start: 20130212, end: 20130305
  4. REBIF [Suspect]
     Route: 058

REACTIONS (4)
  - Spinal column stenosis [Recovering/Resolving]
  - Osteoarthritis [Recovering/Resolving]
  - Multiple sclerosis relapse [Recovering/Resolving]
  - Inappropriate schedule of drug administration [Not Recovered/Not Resolved]
